FAERS Safety Report 22933695 (Version 4)
Quarter: 2023Q4

REPORT INFORMATION
  Report Type: Spontaneous
  Country: GB (occurrence: GB)
  Receive Date: 20230912
  Receipt Date: 20231026
  Transmission Date: 20240110
  Serious: Yes (Hospitalization)
  Sender: FDA-Public Use
  Company Number: GB-MYLANLABS-2023M1095905

PATIENT
  Age: 69 Year
  Sex: Male
  Weight: 65.4 kg

DRUGS (3)
  1. CLOZARIL [Suspect]
     Active Substance: CLOZAPINE
     Indication: Schizophrenia
     Dosage: 425 MILLIGRAM (125MG 8AM 300MG 22:00)
     Route: 048
     Dates: start: 20221129
  2. CLOZARIL [Suspect]
     Active Substance: CLOZAPINE
     Dosage: 425 MILLIGRAM, QD (8:00 125 MG, 22:00 300 MG)
     Route: 065
  3. AMISULPRIDE [Suspect]
     Active Substance: AMISULPRIDE
     Indication: Product used for unknown indication
     Dosage: UNK
     Route: 065

REACTIONS (3)
  - Schizophrenia [Recovered/Resolved]
  - Drug level above therapeutic [Unknown]
  - Poor venous access [Unknown]

NARRATIVE: CASE EVENT DATE: 20230905
